FAERS Safety Report 19398048 (Version 1)
Quarter: 2021Q2

REPORT INFORMATION
  Report Type: Spontaneous
  Country: US (occurrence: US)
  Receive Date: 20210609
  Receipt Date: 20210609
  Transmission Date: 20210717
  Serious: Yes (Hospitalization)
  Sender: FDA-Public Use
  Company Number: None

PATIENT
  Age: 60 Year
  Sex: Female

DRUGS (14)
  1. LEVOTHYROXINE. [Concomitant]
     Active Substance: LEVOTHYROXINE
  2. VITAMIN D [Concomitant]
     Active Substance: VITAMIN D NOS
  3. TACROLIMUS. [Suspect]
     Active Substance: TACROLIMUS
     Indication: LIVER TRANSPLANT
     Route: 048
     Dates: start: 20200828, end: 20210511
  4. MYCOPHEOLATE [Concomitant]
  5. FERRALET [Concomitant]
  6. PANTOPRAZOLE [Concomitant]
     Active Substance: PANTOPRAZOLE
  7. TYLENOL [Concomitant]
     Active Substance: ACETAMINOPHEN
  8. ZORTRESS [Concomitant]
     Active Substance: EVEROLIMUS
  9. LEVETIRACETAM. [Concomitant]
     Active Substance: LEVETIRACETAM
  10. CALCIUM WITH VITAMIN D [Concomitant]
     Active Substance: CALCIUM\VITAMIN D
  11. ATORVASTATIN [Concomitant]
     Active Substance: ATORVASTATIN
  12. NESINA [Concomitant]
     Active Substance: ALOGLIPTIN BENZOATE
  13. PREDNISONE. [Concomitant]
     Active Substance: PREDNISONE
  14. AMLODIPINE [Concomitant]
     Active Substance: AMLODIPINE BESYLATE

REACTIONS (3)
  - Transplantation complication [None]
  - Tremor [None]
  - Mental status changes [None]

NARRATIVE: CASE EVENT DATE: 20210421
